FAERS Safety Report 12126879 (Version 3)
Quarter: 2016Q3

REPORT INFORMATION
  Report Type: Spontaneous
  Country: None (occurrence: DE)
  Receive Date: 20160229
  Receipt Date: 20160926
  Transmission Date: 20161109
  Serious: Yes (Hospitalization)
  Sender: FDA-Public Use
  Company Number: DE-MERCK KGAA-1048473

PATIENT

DRUGS (1)
  1. NOVOTHYROX [Suspect]
     Active Substance: LEVOTHYROXINE SODIUM

REACTIONS (13)
  - Tricuspid valve incompetence [None]
  - Arteriosclerosis coronary artery [None]
  - Pneumonia [None]
  - Tachycardia [None]
  - Mitral valve incompetence [None]
  - Heart rate irregular [None]
  - Hypotension [None]
  - Peripheral swelling [None]
  - Aortic valve incompetence [None]
  - Muscle tightness [None]
  - Hypertensive crisis [None]
  - Drug interaction [None]
  - Gait disturbance [None]
